FAERS Safety Report 9332954 (Version 1)
Quarter: 2013Q3

REPORT INFORMATION
  Report Type: Spontaneous
  Country: US (occurrence: None)
  Receive Date: 20130603
  Receipt Date: 20130603
  Transmission Date: 20140516
  Serious: Yes (Other)
  Sender: FDA-Public Use
  Company Number: None

PATIENT
  Age: 13 Year
  Sex: Female

DRUGS (4)
  1. ERYTHROMYCIN [Suspect]
     Indication: GASTROINTESTINAL MOTILITY DISORDER
     Dates: start: 20130426, end: 20130426
  2. ERYTHROMYCIN [Suspect]
     Indication: OFF LABEL USE
     Dates: start: 20130426, end: 20130426
  3. CITALOPRAM HYDROBROMIDE [Suspect]
     Indication: ANTIDEPRESSANT THERAPY
     Dosage: OD IN THE EVENING, DF
  4. MAGNESIUM CITRATE [Concomitant]

REACTIONS (9)
  - Drug hypersensitivity [None]
  - Multiple allergies [None]
  - Respiratory tract infection [None]
  - Drug interaction [None]
  - Blindness [None]
  - Dyspnoea [None]
  - Migraine [None]
  - Nausea [None]
  - Abdominal pain upper [None]
